FAERS Safety Report 5138788-7 (Version None)
Quarter: 2006Q4

REPORT INFORMATION
  Report Type: 
  Country: None (occurrence: None)
  Receive Date: 20061030
  Receipt Date: 20030311
  Transmission Date: 20070319
  Serious: Yes (Death, Life-Threatening)
  Sender: FDA-Public Use
  Company Number: JP-ROCHE-333558

PATIENT
  Age: 58 Year
  Sex: Male
  Weight: 63 kg

DRUGS (17)
  1. TAMIFLU [Suspect]
     Route: 048
     Dates: start: 20030305, end: 20030305
  2. UNKNOWN DRUG [Concomitant]
     Indication: HYPERAMMONAEMIA
     Dosage: REPORTED AS HEPAN ED
     Route: 048
     Dates: start: 20030228, end: 20030306
  3. URSOSAN [Concomitant]
     Route: 048
     Dates: start: 20030228, end: 20030306
  4. GASTER (JAPAN) [Concomitant]
     Route: 048
     Dates: start: 20030228, end: 20030306
  5. CALSAN [Concomitant]
     Indication: HYPERPHOSPHATAEMIA
     Route: 048
     Dates: start: 20030228, end: 20030306
  6. ALLOID [Concomitant]
     Dosage: REPORTED AS ALLOID G
     Route: 048
     Dates: start: 20030228, end: 20030306
  7. GASTROM [Concomitant]
     Route: 048
     Dates: start: 20030228, end: 20030306
  8. PORTOLAC [Concomitant]
     Indication: HYPERAMMONAEMIA
     Route: 048
     Dates: start: 20030228, end: 20030306
  9. PENTAGIN [Concomitant]
     Indication: PAIN
     Dosage: REPORTED AS PENTAZOCINE HYDROCHLORIDE.
     Route: 030
     Dates: start: 20030305, end: 20030306
  10. BUSCOPAN [Concomitant]
     Route: 042
     Dates: start: 20030305, end: 20030306
  11. UNKNOWN DRUG [Concomitant]
     Dosage: REPORTED AS IR-PC
     Route: 042
     Dates: start: 20030305, end: 20030305
  12. ADONA [Concomitant]
     Route: 042
     Dates: start: 20030306, end: 20030306
  13. TRANSAMIN [Concomitant]
     Route: 042
     Dates: start: 20030306, end: 20030306
  14. DIGOSIN [Concomitant]
     Indication: TACHYCARDIA
     Route: 042
     Dates: start: 20030307, end: 20030307
  15. CARBENIN [Concomitant]
     Indication: SEPSIS
     Route: 042
     Dates: start: 20030306, end: 20030306
  16. MORPHINE HYDROCHLORIDE INTRAVENOUS [Concomitant]
     Indication: PAIN
     Route: 042
     Dates: start: 20030307, end: 20030307
  17. FRESH FROZEN PLASMA [Concomitant]
     Dosage: REPORTED AS FFP.
     Route: 042
     Dates: start: 20030306, end: 20030306

REACTIONS (6)
  - BLOOD CREATININE INCREASED [None]
  - BLOOD UREA INCREASED [None]
  - GASTRIC HAEMORRHAGE [None]
  - HEPATIC FAILURE [None]
  - LEUKOPENIA [None]
  - SEPSIS [None]
